FAERS Safety Report 16159443 (Version 6)
Quarter: 2020Q1

REPORT INFORMATION
  Report Type: Report from Study
  Country: JP (occurrence: JP)
  Receive Date: 20190404
  Receipt Date: 20200113
  Transmission Date: 20200409
  Serious: Yes (Other)
  Sender: FDA-Public Use
  Company Number: JP-EISAI MEDICAL RESEARCH-EC-2019-054332

PATIENT
  Age: 23 Year
  Sex: Female
  Weight: 64 kg

DRUGS (14)
  1. FYCOMPA [Suspect]
     Active Substance: PERAMPANEL
     Route: 048
     Dates: start: 20170614, end: 20170808
  2. FYCOMPA [Suspect]
     Active Substance: PERAMPANEL
     Route: 048
     Dates: start: 20171130, end: 20171130
  3. VIMPAT [Suspect]
     Active Substance: LACOSAMIDE
     Indication: PARTIAL SEIZURES
     Route: 048
     Dates: start: 20171006, end: 20171029
  4. VIMPAT [Suspect]
     Active Substance: LACOSAMIDE
     Route: 048
     Dates: start: 20171124, end: 20171129
  5. VIMPAT [Suspect]
     Active Substance: LACOSAMIDE
     Route: 048
     Dates: start: 20171201
  6. FYCOMPA [Suspect]
     Active Substance: PERAMPANEL
     Route: 048
     Dates: start: 20171201
  7. LAMICTAL [Concomitant]
     Active Substance: LAMOTRIGINE
     Indication: PARTIAL SEIZURES
  8. LOXOPROFEN [Concomitant]
     Active Substance: LOXOPROFEN
  9. FYCOMPA [Suspect]
     Active Substance: PERAMPANEL
     Indication: PARTIAL SEIZURES
     Route: 048
     Dates: start: 20170516, end: 20170613
  10. FYCOMPA [Suspect]
     Active Substance: PERAMPANEL
     Route: 048
     Dates: start: 20170809, end: 20171123
  11. FYCOMPA [Suspect]
     Active Substance: PERAMPANEL
     Route: 048
     Dates: start: 20171124, end: 20171129
  12. VIMPAT [Suspect]
     Active Substance: LACOSAMIDE
     Route: 048
     Dates: start: 20171030, end: 20171123
  13. VIMPAT [Suspect]
     Active Substance: LACOSAMIDE
     Route: 048
     Dates: start: 20171130, end: 20171130
  14. TSUMURA SHAKUYAKUKANZOTO EXTRACT GRANULES FOR ETHICAL USE [Concomitant]

REACTIONS (3)
  - Overdose [Recovered/Resolved]
  - Dissociative disorder [Recovered/Resolved]
  - Vomiting [Recovered/Resolved]

NARRATIVE: CASE EVENT DATE: 20171024
